FAERS Safety Report 7649030-7 (Version None)
Quarter: 2011Q3

REPORT INFORMATION
  Report Type: 
  Country: None (occurrence: None)
  Receive Date: 20110726
  Receipt Date: 20110715
  Transmission Date: 20111222
  Serious: Yes (Hospitalization)
  Sender: FDA-Public Use
  Company Number: 2011S1000652

PATIENT
  Age: 70 Year
  Sex: Female

DRUGS (4)
  1. DEPAS [Concomitant]
  2. LOSARTAN POTASSIUM AND HYDROCHLOROTHIAZIDE [Concomitant]
  3. AMLODIPINE BESYLATE [Concomitant]
  4. LIVALO [Suspect]
     Indication: BLOOD CHOLESTEROL INCREASED
     Dosage: 2 MG;1X;PO
     Route: 048
     Dates: start: 20101029, end: 20110502

REACTIONS (2)
  - RHABDOMYOLYSIS [None]
  - APHAGIA [None]
